FAERS Safety Report 15710646 (Version 2)
Quarter: 2019Q1

REPORT INFORMATION
  Report Type: Spontaneous
  Country: RU (occurrence: RU)
  Receive Date: 20181211
  Receipt Date: 20190208
  Transmission Date: 20190417
  Serious: Yes (Hospitalization)
  Sender: FDA-Public Use
  Company Number: RU-NOVOPROD-636258

PATIENT
  Age: 32 Year
  Sex: Female
  Weight: 84 kg

DRUGS (2)
  1. LEVEMIR [Suspect]
     Active Substance: INSULIN DETEMIR
     Dosage: 6-8 UNITS
     Route: 058
     Dates: start: 201811, end: 20181207
  2. LEVEMIR [Suspect]
     Active Substance: INSULIN DETEMIR
     Indication: GESTATIONAL DIABETES
     Dosage: 3 UNITS
     Route: 058
     Dates: start: 20181003

REACTIONS (3)
  - Blood glucose increased [Recovered/Resolved]
  - Premature delivery [Unknown]
  - Exposure during pregnancy [Recovered/Resolved]

NARRATIVE: CASE EVENT DATE: 20181003
